FAERS Safety Report 5499130-5 (Version None)
Quarter: 2007Q4

REPORT INFORMATION
  Report Type: 
  Country: None (occurrence: None)
  Receive Date: 20071026
  Receipt Date: 20070605
  Transmission Date: 20080405
  Serious: No
  Sender: FDA-Public Use
  Company Number: A0654302A

PATIENT
  Age: 72 Year
  Sex: Male

DRUGS (13)
  1. ADVAIR DISKUS 100/50 [Suspect]
     Indication: ASTHMA
     Dosage: 1PUFF TWICE PER DAY
     Route: 055
  2. XOPENEX [Concomitant]
  3. LOPRESSOR [Concomitant]
  4. ALLOPURINOL [Concomitant]
  5. XALATAN [Concomitant]
  6. VERAPAMIL [Concomitant]
  7. ALBUTEROL [Concomitant]
  8. NEXIUM [Concomitant]
  9. FLONASE [Concomitant]
  10. PRAVACHOL [Concomitant]
  11. SEREVENT [Concomitant]
  12. ATIVAN [Concomitant]
  13. POTASSIUM CHLORIDE [Concomitant]

REACTIONS (1)
  - CANDIDIASIS [None]
